FAERS Safety Report 15617241 (Version 1)
Quarter: 2018Q4

REPORT INFORMATION
  Report Type: Spontaneous
  Country: US (occurrence: US)
  Receive Date: 20181112
  Receipt Date: 20181112
  Transmission Date: 20190205
  Serious: No
  Sender: FDA-Public Use
  Company Number: None

PATIENT
  Age: 60 Year
  Sex: Female

DRUGS (5)
  1. GABAPENTIN 300MG [Concomitant]
     Active Substance: GABAPENTIN
  2. PREDNISONE 1MG [Concomitant]
  3. FORTEO [Suspect]
     Active Substance: TERIPARATIDE
     Indication: FIBROMYALGIA
     Route: 058
     Dates: start: 20180913
  4. OXYCODONE 10MG [Concomitant]
     Active Substance: OXYCODONE
  5. XELJANZ [Suspect]
     Active Substance: TOFACITINIB CITRATE
     Indication: FIBROMYALGIA
     Route: 048
     Dates: start: 20180929, end: 20181031

REACTIONS (2)
  - Intervertebral disc protrusion [None]
  - Spinal operation [None]

NARRATIVE: CASE EVENT DATE: 20181107
